FAERS Safety Report 6840996-1 (Version None)
Quarter: 2010Q3

REPORT INFORMATION
  Report Type: 
  Country: None (occurrence: None)
  Receive Date: 20100714
  Receipt Date: 20070621
  Transmission Date: 20110219
  Serious: No
  Sender: FDA-Public Use
  Company Number: US-PFIZER INC-2007052848

PATIENT
  Sex: Female
  Weight: 65.9 kg

DRUGS (1)
  1. CHANTIX [Suspect]
     Indication: SMOKING CESSATION THERAPY
     Dates: end: 20070616

REACTIONS (6)
  - ABDOMINAL PAIN [None]
  - BACK PAIN [None]
  - FEELING ABNORMAL [None]
  - NAUSEA [None]
  - PAIN [None]
  - RENAL PAIN [None]
